FAERS Safety Report 5115053-5 (Version None)
Quarter: 2006Q3

REPORT INFORMATION
  Report Type: 
  Country: None (occurrence: None)
  Receive Date: 20060922
  Receipt Date: 20060909
  Transmission Date: 20061208
  Serious: Yes (Disabling, Other)
  Sender: FDA-Public Use
  Company Number: 2006092581

PATIENT
  Age: 63 Year
  Sex: Female

DRUGS (10)
  1. SUTENT [Suspect]
     Indication: GASTROINTESTINAL STROMAL TUMOUR
     Dosage: 50 MG (50 MG, 1 IN 1 D); ORAL
     Route: 048
     Dates: start: 20020315
  2. PRILOSEC [Concomitant]
  3. FENTANYL [Concomitant]
  4. HYDROCODONE [Concomitant]
  5. METFORMIN HCL [Concomitant]
  6. DEXAMFETAMINE SULFATE [Concomitant]
  7. ATIVAN [Concomitant]
  8. MECLIZINE [Concomitant]
  9. AVANDIA [Concomitant]
  10. MAGNESIUM OXIDE [Concomitant]

REACTIONS (4)
  - DEAFNESS [None]
  - DIZZINESS [None]
  - GAIT DISTURBANCE [None]
  - MIDDLE EAR EFFUSION [None]
